FAERS Safety Report 21411429 (Version 4)
Quarter: 2023Q4

REPORT INFORMATION
  Report Type: Spontaneous
  Country: US (occurrence: US)
  Receive Date: 20221005
  Receipt Date: 20231020
  Transmission Date: 20240109
  Serious: No
  Sender: FDA-Public Use
  Company Number: US-PFIZER INC-202201204360

PATIENT
  Age: 68 Year
  Sex: Female
  Weight: 62.6 kg

DRUGS (2)
  1. PHENELZINE SULFATE [Suspect]
     Active Substance: PHENELZINE SULFATE
     Dosage: 15 MG
  2. METOPROLOL [Concomitant]
     Active Substance: METOPROLOL
     Indication: Tachycardia
     Dosage: 25 MG, 1X/DAY
     Route: 048

REACTIONS (2)
  - Drug intolerance [Unknown]
  - Condition aggravated [Unknown]
